FAERS Safety Report 6710115-0 (Version None)
Quarter: 2010Q2

REPORT INFORMATION
  Report Type: 
  Country: None (occurrence: None)
  Receive Date: 20100504
  Receipt Date: 20100429
  Transmission Date: 20101027
  Serious: Yes (Other)
  Sender: FDA-Public Use
  Company Number: DE-SANOFI-AVENTIS-2010SA024897

PATIENT
  Sex: Female

DRUGS (4)
  1. ELOXATIN [Suspect]
     Indication: CHEMOTHERAPY
     Route: 065
  2. FLUOROURACIL [Concomitant]
     Indication: CHEMOTHERAPY
     Route: 065
  3. ZIPRASIDONE HCL [Concomitant]
     Indication: DEPRESSION
     Route: 065
  4. CLOMIPRAMINE HCL [Concomitant]
     Indication: DEPRESSION
     Route: 065

REACTIONS (1)
  - DELUSION [None]
